FAERS Safety Report 22381125 (Version 1)
Quarter: 2023Q2

REPORT INFORMATION
  Report Type: Spontaneous
  Country: US (occurrence: US)
  Receive Date: 20230530
  Receipt Date: 20230530
  Transmission Date: 20230722
  Serious: Yes (Other)
  Sender: FDA-Public Use
  Company Number: US-SUN PHARMACEUTICAL INDUSTRIES LTD-2023R1-391434

PATIENT
  Age: 60 Year
  Sex: Female

DRUGS (4)
  1. MORPHINE [Suspect]
     Active Substance: MORPHINE
     Indication: Pain
     Dosage: UNK
     Route: 042
  2. MORPHINE [Suspect]
     Active Substance: MORPHINE
     Indication: Dyspnoea
  3. NALOXONE [Suspect]
     Active Substance: NALOXONE
     Indication: Pain
     Dosage: UNK
     Route: 042
  4. NALOXONE [Suspect]
     Active Substance: NALOXONE
     Indication: Dyspnoea

REACTIONS (1)
  - Condition aggravated [Unknown]
